FAERS Safety Report 18313675 (Version 1)
Quarter: 2020Q3

REPORT INFORMATION
  Report Type: Report from Study
  Country: US (occurrence: US)
  Receive Date: 20200925
  Receipt Date: 20200925
  Transmission Date: 20201103
  Serious: Yes (Hospitalization, Other)
  Sender: FDA-Public Use
  Company Number: US-JNJFOC-A-NJ2020-204102

PATIENT
  Age: 46 Year
  Sex: Male
  Weight: 82.09 kg

DRUGS (7)
  1. VELETRI [Suspect]
     Active Substance: EPOPROSTENOL
     Dosage: 40.42 NG/KG, PER MIN
     Route: 042
  2. ADEMPAS [Concomitant]
     Active Substance: RIOCIGUAT
  3. VELETRI [Suspect]
     Active Substance: EPOPROSTENOL
     Indication: PULMONARY ARTERIAL HYPERTENSION
     Dosage: 40.42 NG/KG, PER MIN
     Route: 042
  4. OPSUMIT [Suspect]
     Active Substance: MACITENTAN
     Indication: PULMONARY ARTERIAL HYPERTENSION
     Dosage: 10 MG, QD
     Route: 048
     Dates: end: 20200616
  5. WARFARIN [Concomitant]
     Active Substance: WARFARIN
  6. ELIQUIS [Concomitant]
     Active Substance: APIXABAN
  7. REVATIO [Concomitant]
     Active Substance: SILDENAFIL CITRATE

REACTIONS (18)
  - Catheter site discolouration [Unknown]
  - Syncope [Unknown]
  - Chest pain [Unknown]
  - Fluid retention [Unknown]
  - Haemoptysis [Recovered/Resolved]
  - Dyspnoea [Unknown]
  - Skin abrasion [Unknown]
  - Palpitations [Unknown]
  - Abdominal discomfort [Unknown]
  - Catheter management [Unknown]
  - Catheter site pain [Unknown]
  - Headache [Unknown]
  - Lower respiratory tract infection [Unknown]
  - Device malfunction [Unknown]
  - Dehydration [Unknown]
  - Device dislocation [Unknown]
  - Weight decreased [Unknown]
  - Productive cough [Unknown]

NARRATIVE: CASE EVENT DATE: 20200602
